FAERS Safety Report 17156698 (Version 12)
Quarter: 2021Q3

REPORT INFORMATION
  Report Type: Spontaneous
  Country: GB (occurrence: GB)
  Receive Date: 20191216
  Receipt Date: 20210927
  Transmission Date: 20211014
  Serious: Yes (Hospitalization, Other)
  Sender: FDA-Public Use
  Company Number: GB-AUROBINDO-AUR-APL-2019-104872

PATIENT
  Age: 7 Year
  Sex: Male

DRUGS (22)
  1. TRAMADOL 50MG CAPSULES, HARD [Suspect]
     Active Substance: TRAMADOL
     Dosage: UNK UNK, ONCE A DAY
     Route: 065
  2. VANCOMYCIN [Suspect]
     Active Substance: VANCOMYCIN
     Indication: DEVICE RELATED INFECTION
  3. TRAMADOL 50MG CAPSULES, HARD [Suspect]
     Active Substance: TRAMADOL
     Indication: PRODUCT USED FOR UNKNOWN INDICATION
     Dosage: 50 MILLIGRAM, ONCE A DAY
     Route: 065
  4. DUTASTERIDE 0.5MG SOFT CAPSULES [Suspect]
     Active Substance: DUTASTERIDE
     Dosage: 500 MILLIGRAM, ONCE A DAY(500 MILLIGRAM, QD )
     Route: 065
  5. TRAMADOL 50MG CAPSULES, HARD [Suspect]
     Active Substance: TRAMADOL
     Dosage: 100 MILLIGRAM, ONCE A DAY
     Route: 065
  6. DAPTOMYCIN. [Suspect]
     Active Substance: DAPTOMYCIN
     Indication: BACTERAEMIA
  7. ALFUZOSIN FILM?COATED TABLETS [Suspect]
     Active Substance: ALFUZOSIN
     Indication: PRODUCT USED FOR UNKNOWN INDICATION
     Dosage: 10 MILLIGRAM, ONCE A DAY
     Route: 065
  8. BISOPROLOL 2.5 MG [Suspect]
     Active Substance: BISOPROLOL
     Indication: PRODUCT USED FOR UNKNOWN INDICATION
     Dosage: 2.5 MILLIGRAM, ONCE A DAY
     Route: 065
  9. TRAMADOL 50MG CAPSULES, HARD [Suspect]
     Active Substance: TRAMADOL
     Dosage: 50 MILLIGRAM
     Route: 065
  10. LANSOPRAZOLE. [Suspect]
     Active Substance: LANSOPRAZOLE
     Indication: PRODUCT USED FOR UNKNOWN INDICATION
     Dosage: 15 MILLIGRAM
     Route: 065
  11. TRAMADOL. [Suspect]
     Active Substance: TRAMADOL
     Dosage: UNK
     Route: 065
  12. DUTASTERIDE 0.5MG SOFT CAPSULES [Suspect]
     Active Substance: DUTASTERIDE
     Indication: PRODUCT USED FOR UNKNOWN INDICATION
     Dosage: 500 MICROGRAM, ONCE A DAY
     Route: 065
  13. DUTASTERIDE 0.5MG SOFT CAPSULES [Suspect]
     Active Substance: DUTASTERIDE
     Dosage: UNK
     Route: 065
  14. TRAMADOL 50MG CAPSULES, HARD [Suspect]
     Active Substance: TRAMADOL
     Dosage: UNK
     Route: 065
  15. DAPTOMYCIN. [Suspect]
     Active Substance: DAPTOMYCIN
     Indication: DEVICE RELATED INFECTION
     Dosage: UNK
     Route: 042
  16. LANSOPRAZOLE. [Suspect]
     Active Substance: LANSOPRAZOLE
     Dosage: 15 MILLIGRAM, ONCE A DAY
     Route: 065
  17. LANSOPRAZOLE. [Suspect]
     Active Substance: LANSOPRAZOLE
     Dosage: 2.5 MILLIGRAM
     Route: 065
  18. VANCOMYCIN [Suspect]
     Active Substance: VANCOMYCIN
     Indication: BACTERAEMIA
     Dosage: UNK
     Route: 065
  19. TRAMADOL. [Suspect]
     Active Substance: TRAMADOL
     Indication: PRODUCT USED FOR UNKNOWN INDICATION
     Dosage: 50 MILLIGRAM, ONCE A DAY
     Route: 065
  20. DUTASTERIDE 0.5MG SOFT CAPSULES [Suspect]
     Active Substance: DUTASTERIDE
     Dosage: 500 GRAM, ONCE A DAY
     Route: 065
  21. TRAMADOL 50MG CAPSULES, HARD [Suspect]
     Active Substance: TRAMADOL
     Dosage: 100 MILLIGRAM
     Route: 065
  22. TRAMADOL. [Suspect]
     Active Substance: TRAMADOL
     Dosage: 100 MILLIGRAM, ONCE A DAY
     Route: 065

REACTIONS (13)
  - Antimicrobial susceptibility test resistant [Unknown]
  - Therapeutic response delayed [Unknown]
  - Product storage error [Unknown]
  - Malaise [Unknown]
  - Product administration error [Unknown]
  - Wrong patient received product [Unknown]
  - Off label use [Unknown]
  - Drug ineffective for unapproved indication [Unknown]
  - Product dispensing error [Unknown]
  - Lower respiratory tract infection [Unknown]
  - Drug dispensed to wrong patient [Unknown]
  - Wrong product administered [Unknown]
  - Therapy non-responder [Unknown]
